FAERS Safety Report 6491332-4 (Version None)
Quarter: 2009Q4

REPORT INFORMATION
  Report Type: 
  Country: None (occurrence: None)
  Receive Date: 20091211
  Receipt Date: 20091201
  Transmission Date: 20100525
  Serious: Yes (Hospitalization)
  Sender: FDA-Public Use
  Company Number: DK-PFIZER INC-2009251489

PATIENT
  Age: 68 Year
  Sex: Female
  Weight: 85 kg

DRUGS (5)
  1. SOMATROPIN [Suspect]
     Indication: GROWTH HORMONE DEFICIENCY
     Dosage: 0.40 MG, 1X/DAY
     Dates: start: 20000125
  2. DESMOPRESSIN [Concomitant]
     Dosage: 0.3 MG, 1X/DAY
     Route: 048
     Dates: start: 20040223
  3. ELTROXIN [Concomitant]
     Dosage: 100 UG, 1X/DAY
     Route: 048
     Dates: start: 20021119
  4. IBUPROFEN [Concomitant]
     Dosage: 800 MG, 2X/DAY
     Route: 048
     Dates: start: 19991015
  5. ATORVASTATIN [Concomitant]
     Dosage: 40 MG, 1X/DAY
     Route: 048
     Dates: start: 19850715

REACTIONS (1)
  - KNEE OPERATION [None]
